FAERS Safety Report 9521321 (Version 1)
Quarter: 2013Q3

REPORT INFORMATION
  Report Type: Spontaneous
  Country: US (occurrence: US)
  Receive Date: 20130913
  Receipt Date: 20130913
  Transmission Date: 20140515
  Serious: Yes (Other)
  Sender: FDA-Public Use
  Company Number: US-JNJFOC-20130904592

PATIENT
  Age: 19 Year
  Sex: Female
  Weight: 89.81 kg

DRUGS (1)
  1. ORTHO EVRA [Suspect]
     Indication: MUSCLE SPASMS
     Route: 062
     Dates: start: 201303

REACTIONS (4)
  - Thrombosis [Recovered/Resolved]
  - Dyspnoea [Recovered/Resolved]
  - Paraesthesia [Recovered/Resolved]
  - Off label use [Unknown]
